FAERS Safety Report 5308664-5 (Version None)
Quarter: 2007Q2

REPORT INFORMATION
  Report Type: 
  Country: None (occurrence: None)
  Receive Date: 20070426
  Receipt Date: 20070416
  Transmission Date: 20071010
  Serious: Yes (Death, Hospitalization)
  Sender: FDA-Public Use
  Company Number: ES-AVENTIS-200711846EU

PATIENT
  Age: 79 Year
  Sex: Male
  Weight: 76 kg

DRUGS (3)
  1. ENOXAPARIN SODIUM [Suspect]
     Indication: ANTICOAGULANT THERAPY
     Dates: start: 20070202, end: 20070205
  2. ENOXAPARIN SODIUM [Suspect]
     Dates: start: 20070205, end: 20070218
  3. UNKNOWN DRUG [Suspect]
     Indication: MALIGNANT MELANOMA
     Route: 042
     Dates: start: 20061129, end: 20061129

REACTIONS (3)
  - COLITIS ISCHAEMIC [None]
  - GASTROINTESTINAL HAEMORRHAGE [None]
  - THROMBOSIS MESENTERIC VESSEL [None]
